FAERS Safety Report 9262511 (Version 1)
Quarter: 2013Q2

REPORT INFORMATION
  Report Type: Spontaneous
  Country: US (occurrence: None)
  Receive Date: 20130429
  Receipt Date: 20130429
  Transmission Date: 20140414
  Serious: Yes (Death)
  Sender: FDA-Public Use
  Company Number: SYM-2013-03085

PATIENT
  Age: 30 Year
  Sex: Male

DRUGS (1)
  1. XENAZINE [Suspect]
     Indication: TARDIVE DYSKINESIA
     Dosage: 25 MG, 8 IN 1 D, ORAL
     Route: 048

REACTIONS (1)
  - Death [None]
